FAERS Safety Report 10066575 (Version 1)
Quarter: 2014Q2

REPORT INFORMATION
  Report Type: Report from Study
  Country: GB (occurrence: GB)
  Receive Date: 20140408
  Receipt Date: 20140408
  Transmission Date: 20141212
  Serious: Yes (Hospitalization)
  Sender: FDA-Public Use
  Company Number: PHHY2014GB038686

PATIENT
  Age: 57 Year
  Sex: Male
  Weight: 113 kg

DRUGS (10)
  1. CISPLATIN [Suspect]
     Indication: GASTRIC CANCER
     Dosage: 130 MG, UNK
     Route: 042
     Dates: start: 20130508
  2. CISPLATIN [Suspect]
     Dosage: 130 MG, UNK
     Route: 042
     Dates: start: 20130529
  3. EPIRUBICIN [Suspect]
     Indication: GASTRIC CANCER
     Dosage: 110 MG, UNK
     Route: 042
     Dates: start: 20130508
  4. EPIRUBICIN [Suspect]
     Dosage: 110 MG, UNK
     Route: 042
     Dates: start: 20130529
  5. XELODA [Suspect]
     Indication: GASTRIC CANCER
     Dosage: 2500 MG, BID
     Route: 048
     Dates: start: 20130508
  6. XELODA [Suspect]
     Dosage: 2500 MG, BID
     Route: 048
     Dates: start: 20130529
  7. AVASTIN [Suspect]
     Indication: GASTRIC CANCER
     Dosage: 860 MG, UNK
     Route: 042
     Dates: start: 20130508
  8. BISOPROLOL [Concomitant]
     Dosage: 2.5 MG, UNK
     Route: 042
     Dates: start: 20130612
  9. LANSOPRAZOLE [Concomitant]
     Dosage: 30 MG, UNK
     Route: 042
     Dates: start: 20130508
  10. PERINDOPRIL [Concomitant]
     Dosage: 2 MG, UNK
     Route: 042
     Dates: start: 20130529

REACTIONS (2)
  - Chest pain [Not Recovered/Not Resolved]
  - Pyrexia [Recovered/Resolved]
